FAERS Safety Report 20821852 (Version 1)
Quarter: 2022Q2

REPORT INFORMATION
  Report Type: Spontaneous
  Country: US (occurrence: US)
  Receive Date: 20220512
  Receipt Date: 20220512
  Transmission Date: 20220721
  Serious: No
  Sender: FDA-Public Use
  Company Number: US-Covis Pharma GmbH-2022COV01331

PATIENT
  Age: 11 Year
  Sex: Male

DRUGS (1)
  1. ZETONNA [Suspect]
     Active Substance: CICLESONIDE
     Indication: Product used for unknown indication
     Route: 045

REACTIONS (1)
  - Off label use [Unknown]
